FAERS Safety Report 5068535-9 (Version None)
Quarter: 2006Q3

REPORT INFORMATION
  Report Type: 
  Country: None (occurrence: None)
  Receive Date: 20060802
  Receipt Date: 20051110
  Transmission Date: 20061208
  Serious: Yes (Hospitalization)
  Sender: FDA-Public Use
  Company Number: US-BRISTOL-MYERS SQUIBB COMPANY-13177068

PATIENT
  Age: 87 Year
  Sex: Male
  Weight: 84 kg

DRUGS (7)
  1. COUMADIN [Suspect]
     Indication: AORTIC VALVE REPLACEMENT
     Dosage: 5 MG DAILY M,W,F, 7.5 MG DAILY SU,T,TH,SA
  2. BENADRYL [Suspect]
     Indication: PHARYNGOLARYNGEAL PAIN
     Dates: start: 20051102, end: 20051104
  3. ATENOLOL [Concomitant]
  4. BENICAR [Concomitant]
  5. FUROSEMIDE [Concomitant]
  6. METHIMAZOLE [Concomitant]
  7. PROSCAR [Concomitant]

REACTIONS (2)
  - EPISTAXIS [None]
  - INTERNATIONAL NORMALISED RATIO ABNORMAL [None]
